FAERS Safety Report 4269937-0 (Version None)
Quarter: 2004Q1

REPORT INFORMATION
  Report Type: 
  Country: None (occurrence: None)
  Receive Date: 20040113
  Receipt Date: 20040113
  Transmission Date: 20041129
  Serious: Yes (Hospitalization)
  Sender: FDA-Public Use
  Company Number: None

PATIENT
  Age: 67 Year
  Sex: Male

DRUGS (5)
  1. IRBESARTAN [Suspect]
     Indication: HYPERTENSION
     Dosage: 300 MG QD
     Dates: start: 20010401
  2. FUROSEMIDE [Concomitant]
  3. LORATADINE [Concomitant]
  4. KCL TAB [Concomitant]
  5. NIFEDIPINE [Concomitant]

REACTIONS (2)
  - HYPERKALAEMIA [None]
  - RENAL FAILURE ACUTE [None]
